FAERS Safety Report 5215774-X (Version None)
Quarter: 2007Q1

REPORT INFORMATION
  Report Type: 
  Country: None (occurrence: None)
  Receive Date: 20070123
  Receipt Date: 20070115
  Transmission Date: 20070707
  Serious: Yes (Other)
  Sender: FDA-Public Use
  Company Number: US-JNJFOC-20070104021

PATIENT
  Sex: Male
  Weight: 9.98 kg

DRUGS (4)
  1. TYLENOL (CAPLET) [Suspect]
  2. TYLENOL (CAPLET) [Suspect]
     Indication: PYREXIA
  3. AMOXICILLIN [Concomitant]
  4. CHILDREN'S MOTRIN [Concomitant]

REACTIONS (4)
  - HYPOVENTILATION [None]
  - OVERDOSE [None]
  - SOMNOLENCE [None]
  - WHEEZING [None]
